FAERS Safety Report 13474014 (Version 2)
Quarter: 2017Q2

REPORT INFORMATION
  Report Type: Spontaneous
  Country: US (occurrence: US)
  Receive Date: 20170424
  Receipt Date: 20170510
  Transmission Date: 20170830
  Serious: No
  Sender: FDA-Public Use
  Company Number: US-ALLERGAN-1715453US

PATIENT
  Age: 63 Year
  Sex: Female

DRUGS (1)
  1. LINZESS [Suspect]
     Active Substance: LINACLOTIDE
     Indication: COLITIS
     Dosage: UNK UNK, UNKNOWN
     Route: 065
     Dates: start: 201703

REACTIONS (2)
  - Off label use [Unknown]
  - Drug dose omission [Unknown]
